FAERS Safety Report 4500768-X (Version None)
Quarter: 2004Q4

REPORT INFORMATION
  Report Type: 
  Country: None (occurrence: None)
  Receive Date: 20041112
  Receipt Date: 20041112
  Transmission Date: 20050328
  Serious: Yes (Life-Threatening)
  Sender: FDA-Public Use
  Company Number: None

PATIENT
  Age: 65 Year
  Sex: Female
  Weight: 61.2356 kg

DRUGS (6)
  1. CYTOXAN [Suspect]
     Indication: LYMPHOMA
     Dosage: 390MG IV D 1,2,3
     Route: 042
     Dates: start: 20040908
  2. CYTOXAN [Suspect]
     Indication: LYMPHOMA
     Dosage: 390MG IV D 1,2,3
     Route: 042
     Dates: start: 20040909
  3. CYTOXAN [Suspect]
     Indication: LYMPHOMA
     Dosage: 390MG IV D 1,2,3
     Route: 042
     Dates: start: 20040910
  4. FLUDARA [Suspect]
     Indication: LYMPHOMA
     Dosage: 39MG IV D 1,2,3
     Route: 042
     Dates: start: 20040908
  5. FLUDARA [Suspect]
     Indication: LYMPHOMA
     Dosage: 39MG IV D 1,2,3
     Route: 042
     Dates: start: 20040909
  6. FLUDARA [Suspect]
     Indication: LYMPHOMA
     Dosage: 39MG IV D 1,2,3
     Route: 042
     Dates: start: 20040910

REACTIONS (9)
  - COMA [None]
  - CONFUSIONAL STATE [None]
  - DIARRHOEA [None]
  - FALL [None]
  - NAUSEA [None]
  - PANCYTOPENIA [None]
  - PYREXIA [None]
  - STUPOR [None]
  - VOMITING [None]
